FAERS Safety Report 9220874 (Version 1)
Quarter: 2013Q2

REPORT INFORMATION
  Report Type: Spontaneous
  Country: US (occurrence: US)
  Receive Date: 20130409
  Receipt Date: 20130409
  Transmission Date: 20140414
  Serious: No
  Sender: FDA-Public Use
  Company Number: US-ASTRAZENECA-2013SE20312

PATIENT
  Age: 64 Year
  Sex: Female
  Weight: 49.9 kg

DRUGS (9)
  1. NEXIUM [Suspect]
     Indication: DYSPEPSIA
     Route: 048
     Dates: start: 2003
  2. NEXIUM [Suspect]
     Indication: DYSPEPSIA
     Route: 048
  3. LISINOPRIL [Suspect]
     Indication: CARDIAC DISORDER
     Route: 048
     Dates: start: 2005
  4. UNSPECIFIED INGREDIENTS [Suspect]
     Route: 065
  5. ATENOLOL [Concomitant]
     Indication: CARDIAC DISORDER
     Dosage: 25 MG
     Route: 048
     Dates: start: 2005
  6. ASPIRIN [Concomitant]
     Indication: CARDIAC DISORDER
     Dosage: 81 MG
     Dates: start: 2005
  7. PLAVIX [Concomitant]
     Indication: CARDIAC DISORDER
     Dosage: 75 MG
     Dates: start: 2005
  8. LIPITOR [Concomitant]
     Indication: CARDIAC DISORDER
     Dosage: 20 MG
     Dates: start: 2005
  9. CLONAZEPAM [Concomitant]
     Indication: VERTIGO
     Dosage: 0.25 MG
     Dates: start: 2009

REACTIONS (5)
  - Dyspepsia [Unknown]
  - Cardiac disorder [Unknown]
  - Vertigo [Unknown]
  - Dizziness [Unknown]
  - Incorrect drug administration duration [Unknown]
